FAERS Safety Report 10241790 (Version 2)
Quarter: 2014Q2

REPORT INFORMATION
  Report Type: Spontaneous
  Country: US (occurrence: None)
  Receive Date: 20140612
  Receipt Date: 20140627
  Transmission Date: 20141212
  Serious: Yes (Other)
  Sender: FDA-Public Use
  Company Number: 2014VER00006

PATIENT
  Age: 24 Year
  Sex: Female

DRUGS (4)
  1. MYORISAN [Suspect]
     Indication: ACNE CYSTIC
     Dosage: 40 MG, 2XDAY,ORAL.
     Dates: start: 20140224, end: 20140530
  2. CITALOPRAM [Concomitant]
  3. LEVOTHYROXIN [Concomitant]
  4. NUVARING (ETONOGESTREL/ETHINYL ESTRADIOL VAGINAL RING) [Concomitant]

REACTIONS (8)
  - Anxiety [None]
  - Mood swings [None]
  - Crying [None]
  - Abnormal behaviour [None]
  - Dry skin [None]
  - Lip dry [None]
  - Depression [None]
  - Agitation [None]
